FAERS Safety Report 4468470-0 (Version None)
Quarter: 2004Q4

REPORT INFORMATION
  Report Type: 
  Country: None (occurrence: None)
  Receive Date: 20041006
  Receipt Date: 20041001
  Transmission Date: 20050328
  Serious: Yes (Other)
  Sender: FDA-Public Use
  Company Number: 002829

PATIENT
  Age: 63 Year
  Sex: Female

DRUGS (4)
  1. MEDROXYPROGESTERONE ACETATE [Suspect]
     Dosage: ORAL
     Route: 048
     Dates: start: 19960301, end: 20001001
  2. PROVERA [Suspect]
     Dosage: ORAL
     Route: 048
     Dates: start: 19960301, end: 20001001
  3. ESTRATAB [Suspect]
     Dosage: ORAL
     Route: 048
     Dates: start: 19960301, end: 20001001
  4. PREMARIN H-C VAGINAL CREAM [Suspect]
     Dosage: TOPICAL
     Route: 061
     Dates: start: 19990801, end: 19990801

REACTIONS (1)
  - BREAST CANCER FEMALE [None]
